FAERS Safety Report 5255322-1 (Version None)
Quarter: 2007Q1

REPORT INFORMATION
  Report Type: 
  Country: None (occurrence: None)
  Receive Date: 20070305
  Receipt Date: 20070301
  Transmission Date: 20070707
  Serious: Yes (Hospitalization)
  Sender: FDA-Public Use
  Company Number: JP-JPN-A200700486

PATIENT
  Age: 65 Year
  Sex: Female
  Weight: 45 kg

DRUGS (12)
  1. VALTREX [Suspect]
     Indication: HERPES ZOSTER
     Dosage: 500G TWICE PER DAY
     Route: 048
     Dates: start: 20070205, end: 20070207
  2. ALFAROL [Concomitant]
     Route: 048
     Dates: start: 20070101
  3. CALTAN [Concomitant]
     Route: 048
     Dates: start: 20070101
  4. THYRADIN [Concomitant]
     Indication: HYPOTHYROIDISM
     Dosage: 50MCG PER DAY
     Route: 048
  5. ZESULAN [Concomitant]
     Indication: PRURITUS
     Dosage: 3MG PER DAY
     Route: 048
  6. ROCORNAL [Concomitant]
     Indication: CORONARY ARTERY DILATATION
     Dosage: 200MG PER DAY
     Route: 048
  7. EURODIN [Concomitant]
     Indication: INSOMNIA
     Dosage: 4MG PER DAY
     Route: 048
  8. CYANOCOBALAMIN [Concomitant]
     Indication: NEUROPATHY PERIPHERAL
     Dosage: 1500MG PER DAY
     Route: 048
  9. CINAL [Concomitant]
     Indication: NUTRITIONAL SUPPORT
     Dosage: 200MG PER DAY
     Route: 048
     Dates: start: 20070206
  10. VITAMEDIN [Concomitant]
     Indication: NUTRITIONAL SUPPORT
     Dosage: 100MG PER DAY
     Route: 048
     Dates: start: 20070206
  11. LOXONIN [Concomitant]
     Indication: PAIN
     Dosage: 60MG PER DAY
     Route: 048
  12. HEMODIALYSIS [Concomitant]

REACTIONS (3)
  - DIZZINESS [None]
  - ENCEPHALOPATHY [None]
  - FATIGUE [None]
